FAERS Safety Report 5456335-7 (Version None)
Quarter: 2007Q3

REPORT INFORMATION
  Report Type: 
  Country: None (occurrence: None)
  Receive Date: 20070918
  Receipt Date: 20070330
  Transmission Date: 20080115
  Serious: No
  Sender: FDA-Public Use
  Company Number: US-ASTRAZENECA-2006UW25055

PATIENT
  Age: 552 Month
  Sex: Male
  Weight: 106.8 kg

DRUGS (4)
  1. SEROQUEL [Suspect]
     Indication: DEPRESSION
     Route: 048
     Dates: start: 19990401, end: 20010501
  2. THORAZINE [Concomitant]
  3. ZYPREXA [Concomitant]
  4. CELEXA [Concomitant]

REACTIONS (2)
  - DIABETES MELLITUS [None]
  - FUNGAL SKIN INFECTION [None]
